FAERS Safety Report 10043349 (Version 1)
Quarter: 2014Q1

REPORT INFORMATION
  Report Type: Spontaneous
  Country: US (occurrence: US)
  Receive Date: 20140328
  Receipt Date: 20140328
  Transmission Date: 20141002
  Serious: Yes (Disabling)
  Sender: FDA-Public Use
  Company Number: US-SA-2014SA022217

PATIENT
  Age: 59 Year
  Sex: Female

DRUGS (6)
  1. LANTUS SOLOSTAR [Suspect]
     Indication: DIABETES MELLITUS
     Dosage: DOSE:30 UNIT(S)
     Route: 051
  2. LANTUS SOLOSTAR [Suspect]
     Indication: DIABETES MELLITUS
     Dosage: DOSE:30 UNIT(S)
     Route: 051
  3. LANTUS SOLOSTAR [Suspect]
     Indication: DIABETES MELLITUS
     Dosage: DOSE:30 UNIT(S)
     Route: 051
  4. SOLOSTAR [Suspect]
     Indication: DEVICE THERAPY
  5. SOLOSTAR [Suspect]
     Indication: DEVICE THERAPY
  6. SOLOSTAR [Suspect]
     Indication: DEVICE THERAPY

REACTIONS (2)
  - Back injury [Unknown]
  - Blood glucose increased [Unknown]
